FAERS Safety Report 18728971 (Version 2)
Quarter: 2021Q1

REPORT INFORMATION
  Report Type: Spontaneous
  Country: DE (occurrence: DE)
  Receive Date: 20210112
  Receipt Date: 20210119
  Transmission Date: 20210419
  Serious: No
  Sender: FDA-Public Use
  Company Number: NVSC2021DE004781

PATIENT
  Sex: Male

DRUGS (2)
  1. TERBINAFIN ? 1 A PHARMA 250 MG TABLETTEN [Suspect]
     Active Substance: TERBINAFINE HYDROCHLORIDE
     Indication: PRODUCT USED FOR UNKNOWN INDICATION
     Dosage: 1 DF, QD
     Route: 065
     Dates: start: 2020, end: 2020
  2. TERBINAFIN ? 1 A PHARMA 250 MG TABLETTEN [Suspect]
     Active Substance: TERBINAFINE HYDROCHLORIDE
     Dosage: 1 DF, QW
     Route: 065
     Dates: start: 2020

REACTIONS (1)
  - Tumour marker increased [Unknown]

NARRATIVE: CASE EVENT DATE: 2020
